FAERS Safety Report 5877338-4 (Version None)
Quarter: 2008Q3

REPORT INFORMATION
  Report Type: 
  Country: None (occurrence: None)
  Receive Date: 20080910
  Receipt Date: 20080828
  Transmission Date: 20090109
  Serious: Yes (Hospitalization)
  Sender: FDA-Public Use
  Company Number: JP-AMGEN-US306363

PATIENT
  Sex: Male
  Weight: 52 kg

DRUGS (9)
  1. ENBREL [Suspect]
     Indication: RHEUMATOID ARTHRITIS
     Route: 058
     Dates: start: 20060623, end: 20080601
  2. ISONIAZID [Concomitant]
     Route: 048
     Dates: end: 20080603
  3. FAMOTIDINE [Concomitant]
     Route: 048
     Dates: end: 20080603
  4. ZITHROMAX [Concomitant]
     Route: 048
     Dates: start: 20080513, end: 20080516
  5. SELTOUCH [Concomitant]
     Dosage: UNKNOWN
     Route: 061
  6. VOLTAREN [Concomitant]
     Dosage: UNKNOWN
     Route: 061
  7. PREDNISOLONE [Concomitant]
     Route: 048
  8. PLETAL [Concomitant]
     Route: 048
     Dates: end: 20080603
  9. SELBEX [Concomitant]
     Route: 048
     Dates: end: 20080603

REACTIONS (5)
  - CONDITION AGGRAVATED [None]
  - HEPATIC CIRRHOSIS [None]
  - HEPATIC FAILURE [None]
  - LISTERIA ENCEPHALITIS [None]
  - SEPTIC SHOCK [None]
